FAERS Safety Report 14164203 (Version 1)
Quarter: 2017Q4

REPORT INFORMATION
  Report Type: Spontaneous
  Country: US (occurrence: US)
  Receive Date: 20171107
  Receipt Date: 20171107
  Transmission Date: 20180321
  Serious: No
  Sender: FDA-Public Use
  Company Number: US-IROKO PHARMACEUTICALS LLC-US-I09001-17-00114

PATIENT
  Age: 50 Year
  Sex: Male

DRUGS (1)
  1. VIVLODEX [Suspect]
     Active Substance: MELOXICAM
     Indication: MUSCULOSKELETAL PAIN
     Route: 048
     Dates: start: 20170821, end: 20170824

REACTIONS (2)
  - Dizziness [Recovered/Resolved]
  - Off label use [Recovered/Resolved]

NARRATIVE: CASE EVENT DATE: 20170821
